FAERS Safety Report 8758160 (Version 3)
Quarter: 2012Q4

REPORT INFORMATION
  Report Type: 
  Country: US (occurrence: US)
  Receive Date: 20120828
  Receipt Date: 20121024
  Transmission Date: 20130627
  Serious: No
  Sender: FDA-Public Use
  Company Number: US-009507513-1208USA007058

PATIENT
  Sex: Female
  Weight: 113.3 kg

DRUGS (8)
  1. NEXPLANON [Suspect]
     Indication: CONTRACEPTION
     Dosage: 1 DF, UNK
     Route: 059
     Dates: start: 20120511, end: 20120924
  2. NEXPLANON [Suspect]
     Dosage: 1 DF, UNK
     Route: 059
     Dates: end: 20120511
  3. METFORMIN [Concomitant]
  4. ZOCOR [Concomitant]
  5. HYDROCHLOROTHIAZIDE (+) TRIAMTERENE [Concomitant]
  6. PAXIL [Concomitant]
  7. GLIPIZIDE [Concomitant]
  8. LANTUS [Concomitant]

REACTIONS (3)
  - Device breakage [Unknown]
  - Metrorrhagia [Not Recovered/Not Resolved]
  - Medical device complication [Unknown]
